FAERS Safety Report 15530701 (Version 1)
Quarter: 2018Q4

REPORT INFORMATION
  Report Type: Spontaneous
  Country: PT (occurrence: PT)
  Receive Date: 20181018
  Receipt Date: 20181018
  Transmission Date: 20190205
  Serious: Yes (Life-Threatening, Hospitalization)
  Sender: FDA-Public Use
  Company Number: PT-009507513-1810PRT006508

PATIENT
  Age: 37 Year
  Sex: Male
  Weight: 80 kg

DRUGS (3)
  1. DIPROFOS DEPOT [Suspect]
     Active Substance: BETAMETHASONE DIPROPIONATE\BETAMETHASONE SODIUM PHOSPHATE
     Indication: JOINT INJURY
     Dosage: TOOK 3 INJECTIONS: MAY, JULY AND DECEMBER; AS NECESSARY
     Route: 030
     Dates: start: 20120530, end: 20121215
  2. ADALAT CC [Concomitant]
     Active Substance: NIFEDIPINE
  3. ESOMEPRAZOLE. [Concomitant]
     Active Substance: ESOMEPRAZOLE MAGNESIUM

REACTIONS (3)
  - Hypokalaemia [Recovered/Resolved with Sequelae]
  - Atrial fibrillation [Recovered/Resolved with Sequelae]
  - Pollakiuria [Recovered/Resolved with Sequelae]

NARRATIVE: CASE EVENT DATE: 20120530
